FAERS Safety Report 6401941-6 (Version None)
Quarter: 2009Q4

REPORT INFORMATION
  Report Type: 
  Country: None (occurrence: None)
  Receive Date: 20091015
  Receipt Date: 20091012
  Transmission Date: 20100525
  Serious: Yes (Other)
  Sender: FDA-Public Use
  Company Number: A0811413A

PATIENT
  Age: 71 Year
  Sex: Male

DRUGS (5)
  1. ADVAIR DISKUS 100/50 [Suspect]
     Indication: EMPHYSEMA
     Dosage: 1PUFF AT NIGHT
     Route: 055
     Dates: start: 20040101, end: 20080101
  2. ADVAIR DISKUS 100/50 [Suspect]
     Dosage: 1PUFF IN THE MORNING
     Route: 055
     Dates: start: 20080101
  3. SPIRIVA [Concomitant]
  4. CARDURA [Concomitant]
  5. BLOOD PRESSURE MEDICATION [Concomitant]

REACTIONS (4)
  - CEREBROVASCULAR ACCIDENT [None]
  - HYPERTENSION [None]
  - HYPOAESTHESIA [None]
  - HYPOAESTHESIA FACIAL [None]
